FAERS Safety Report 9605266 (Version 2)
Quarter: 2013Q4

REPORT INFORMATION
  Report Type: Spontaneous
  Country: JP (occurrence: JP)
  Receive Date: 20131008
  Receipt Date: 20131022
  Transmission Date: 20140711
  Serious: Yes (Hospitalization)
  Sender: FDA-Public Use
  Company Number: JP-GLAXOSMITHKLINE-B0928067A

PATIENT
  Age: 26 Year
  Sex: Female
  Weight: 54 kg

DRUGS (8)
  1. LAMICTAL [Suspect]
     Indication: BIPOLAR DISORDER
     Dosage: 25MG PER DAY
     Route: 048
     Dates: start: 20130817, end: 20130830
  2. CALONAL [Suspect]
     Indication: PYREXIA
     Route: 048
  3. CYMBALTA [Concomitant]
     Dosage: 20MG PER DAY
     Route: 048
  4. ABILIFY [Concomitant]
     Dosage: 3MG PER DAY
     Route: 048
  5. LIMAS [Concomitant]
     Dosage: 400MG TWICE PER DAY
     Route: 048
  6. ZYPREXA [Concomitant]
     Dosage: 1.25MG PER DAY
     Route: 048
  7. LEXAPRO [Concomitant]
     Dosage: 10MG PER DAY
     Route: 048
  8. CHINESE MEDICINE [Concomitant]
     Dosage: 2.5G THREE TIMES PER DAY
     Route: 048

REACTIONS (5)
  - Hepatitis acute [Recovering/Resolving]
  - Rash generalised [Recovering/Resolving]
  - Pyrexia [Unknown]
  - Decreased appetite [Unknown]
  - Chills [Unknown]
